FAERS Safety Report 8325201-1 (Version None)
Quarter: 2012Q2

REPORT INFORMATION
  Report Type: 
  Country: None (occurrence: None)
  Receive Date: 20120427
  Receipt Date: 20120419
  Transmission Date: 20120825
  Serious: Yes (Hospitalization, Other)
  Sender: FDA-Public Use
  Company Number: 2012SP015559

PATIENT
  Age: 45 Year
  Sex: Male

DRUGS (4)
  1. ZOFRAN [Concomitant]
  2. PERCOCET [Concomitant]
  3. INTERFERON ALFA [Suspect]
     Indication: MALIGNANT MELANOMA
     Dosage: IV
     Route: 042
     Dates: start: 20120101
  4. ATIVAN [Concomitant]

REACTIONS (14)
  - BLOOD BILIRUBIN INCREASED [None]
  - ALANINE AMINOTRANSFERASE INCREASED [None]
  - FATIGUE [None]
  - BLOOD POTASSIUM DECREASED [None]
  - ASPARTATE AMINOTRANSFERASE INCREASED [None]
  - BLOOD CULTURE POSITIVE [None]
  - SEPSIS [None]
  - NEUTROPHIL COUNT DECREASED [None]
  - STAPHYLOCOCCUS TEST POSITIVE [None]
  - BLOOD ALKALINE PHOSPHATASE INCREASED [None]
  - FEELING ABNORMAL [None]
  - DRUG DOSE OMISSION [None]
  - DEVICE RELATED INFECTION [None]
  - DEHYDRATION [None]
